FAERS Safety Report 5496253-1 (Version None)
Quarter: 2007Q4

REPORT INFORMATION
  Report Type: 
  Country: None (occurrence: None)
  Receive Date: 20071025
  Receipt Date: 20070316
  Transmission Date: 20080405
  Serious: Yes (Other)
  Sender: FDA-Public Use
  Company Number: A0643567A

PATIENT
  Age: 87 Year
  Sex: Female

DRUGS (15)
  1. ADVAIR DISKUS 100/50 [Suspect]
     Indication: CHRONIC OBSTRUCTIVE PULMONARY DISEASE
     Route: 055
     Dates: start: 20060601, end: 20070314
  2. XOPENEX [Concomitant]
  3. NEXIUM [Concomitant]
  4. ZETIA [Concomitant]
  5. SOTALOL HYDROCHLORIDE [Concomitant]
  6. LISINOPRIL [Concomitant]
  7. DILTIAZEM [Concomitant]
  8. FRUSEMIDE [Concomitant]
  9. POTASSIUM CHLORIDE [Concomitant]
  10. CALCIUM [Concomitant]
  11. UNSPECIFIED MEDICATION [Concomitant]
  12. TOPROL-XL [Concomitant]
  13. ALTOPREV [Concomitant]
  14. NASONEX [Concomitant]
  15. BONIVA [Concomitant]

REACTIONS (2)
  - ATRIAL FIBRILLATION [None]
  - CANDIDIASIS [None]
